FAERS Safety Report 5251907-7 (Version None)
Quarter: 2007Q1

REPORT INFORMATION
  Report Type: 
  Country: None (occurrence: None)
  Receive Date: 20070223
  Receipt Date: 20070212
  Transmission Date: 20070707
  Serious: Yes (Hospitalization)
  Sender: FDA-Public Use
  Company Number: 2007BI003157

PATIENT
  Age: 51 Year
  Sex: Female
  Weight: 102.0593 kg

DRUGS (14)
  1. AVONEX [Suspect]
     Indication: MULTIPLE SCLEROSIS
     Dosage: 30 UG; QW; IM
     Route: 030
     Dates: start: 20000801, end: 20030101
  2. AVONEX [Suspect]
     Indication: MULTIPLE SCLEROSIS
     Dosage: 30 UG; QW; IM
     Route: 030
     Dates: start: 20030101
  3. AVONEX [Suspect]
     Indication: MULTIPLE SCLEROSIS
     Dosage: 30 UG; QW; IM
     Route: 030
     Dates: end: 20050501
  4. AVONEX [Suspect]
     Indication: MULTIPLE SCLEROSIS
     Dosage: 30 UG; QW; IM
     Route: 030
     Dates: start: 20051201
  5. SINGULAIR [Concomitant]
  6. FLOVENT [Concomitant]
  7. RHINOCORT [Concomitant]
  8. PROVENTIL [Concomitant]
  9. PREDNISONE [Concomitant]
  10. ESTROGENS SOL/INJ [Concomitant]
  11. VALIUM [Concomitant]
  12. FIORICET [Concomitant]
  13. DILAUDID [Concomitant]
  14. ZANTAC [Concomitant]

REACTIONS (15)
  - ANGINA PECTORIS [None]
  - BLOOD CHOLESTEROL INCREASED [None]
  - DIARRHOEA [None]
  - GLAUCOMA [None]
  - HYPERTENSION [None]
  - INFLUENZA LIKE ILLNESS [None]
  - INJECTION SITE ERYTHEMA [None]
  - INJECTION SITE PRURITUS [None]
  - INJECTION SITE RASH [None]
  - INJECTION SITE URTICARIA [None]
  - MEMORY IMPAIRMENT [None]
  - MIGRAINE [None]
  - OPTIC NEURITIS [None]
  - SPEECH DISORDER [None]
  - WHEEZING [None]
